FAERS Safety Report 14758965 (Version 2)
Quarter: 2022Q3

REPORT INFORMATION
  Report Type: Spontaneous
  Country: US (occurrence: US)
  Receive Date: 20180413
  Receipt Date: 20220817
  Transmission Date: 20221027
  Serious: No
  Sender: FDA-Public Use
  Company Number: US-SHIRE-US201813948

PATIENT
  Age: 58 Year
  Sex: Female

DRUGS (4)
  1. GATTEX [Suspect]
     Active Substance: TEDUGLUTIDE\WATER
     Indication: Product used for unknown indication
     Dosage: 0.1 MILLILITER
     Route: 058
     Dates: start: 20180405
  2. GATTEX [Suspect]
     Active Substance: TEDUGLUTIDE\WATER
     Indication: Product used for unknown indication
     Dosage: 0.1 MILLILITER
     Route: 058
     Dates: start: 20180405
  3. GATTEX [Suspect]
     Active Substance: TEDUGLUTIDE\WATER
     Indication: Product used for unknown indication
     Dosage: 0.1 MILLILITER
     Route: 058
     Dates: start: 20180405
  4. GATTEX [Suspect]
     Active Substance: TEDUGLUTIDE\WATER
     Indication: Product used for unknown indication
     Dosage: 0.1 MILLILITER
     Route: 058
     Dates: start: 20180405

REACTIONS (2)
  - Ileostomy [Unknown]
  - Nausea [Not Recovered/Not Resolved]

NARRATIVE: CASE EVENT DATE: 20180406
